FAERS Safety Report 4716022-7 (Version None)
Quarter: 2005Q3

REPORT INFORMATION
  Report Type: 
  Country: None (occurrence: None)
  Receive Date: 20050718
  Receipt Date: 20050707
  Transmission Date: 20060218
  Serious: Yes (Other)
  Sender: FDA-Public Use
  Company Number: DE-GLAXOSMITHKLINE-D0047080A

PATIENT
  Sex: Female

DRUGS (5)
  1. IMIGRAN [Suspect]
     Indication: MIGRAINE
     Dosage: 50MG UNKNOWN
     Route: 048
  2. AVAMIGRAN [Concomitant]
     Indication: MIGRAINE
     Route: 065
  3. MIGRAETAN [Concomitant]
     Indication: MIGRAINE
     Route: 065
  4. CAFERGOT [Concomitant]
     Indication: MIGRAINE
     Route: 065
  5. METOPROLOL SUCCINATE [Concomitant]
     Route: 065

REACTIONS (2)
  - VISUAL DISTURBANCE [None]
  - VITREOUS DETACHMENT [None]
